FAERS Safety Report 6752391-4 (Version None)
Quarter: 2010Q2

REPORT INFORMATION
  Report Type: 
  Country: None (occurrence: None)
  Receive Date: 20100601
  Receipt Date: 20100601
  Transmission Date: 20101027
  Serious: Yes (Life-Threatening)
  Sender: FDA-Public Use
  Company Number: None

PATIENT
  Age: 25 Year
  Sex: Female
  Weight: 58.9676 kg

DRUGS (1)
  1. LOESTRIN 24 FE [Suspect]
     Indication: ORAL CONTRACEPTION
     Dosage: 1 PILL DAILY PO
     Route: 048
     Dates: start: 20090901, end: 20100501

REACTIONS (4)
  - AMENORRHOEA [None]
  - ANXIETY [None]
  - DEPRESSED MOOD [None]
  - SUICIDAL BEHAVIOUR [None]
